FAERS Safety Report 5232780-X (Version None)
Quarter: 2007Q1

REPORT INFORMATION
  Report Type: 
  Country: None (occurrence: None)
  Receive Date: 20070206
  Receipt Date: 20070206
  Transmission Date: 20070707
  Serious: Yes (Death, Congenital Anomaly)
  Sender: FDA-Public Use
  Company Number: None

PATIENT
  Age: 17 Month
  Sex: Male

DRUGS (2)
  1. DEPAKOTE [Suspect]
     Indication: EPILEPSY
     Dosage: 250 MG TID PO ONGOING THROUGHOUT PREGNANCY
     Route: 048
  2. LAMICTAL [Suspect]
     Dosage: 50 MG BID PO
     Route: 048

REACTIONS (2)
  - DRUG EXPOSURE DURING PREGNANCY [None]
  - NASOPHARYNGITIS [None]
